FAERS Safety Report 9838408 (Version 2)
Quarter: 2014Q1

REPORT INFORMATION
  Report Type: Spontaneous
  Country: US (occurrence: US)
  Receive Date: 20140123
  Receipt Date: 20140207
  Transmission Date: 20141002
  Serious: Yes (Hospitalization)
  Sender: FDA-Public Use
  Company Number: US-BAYER-2014-007581

PATIENT
  Age: 49 Year
  Sex: Female

DRUGS (2)
  1. MIRENA [Suspect]
     Indication: MENORRHAGIA
     Dosage: 20 MCG/24HR, CONT
     Route: 015
     Dates: start: 20120123, end: 20120629
  2. SIMVASTATIN [Concomitant]
     Indication: HYPERCHOLESTEROLAEMIA

REACTIONS (19)
  - Device related infection [Not Recovered/Not Resolved]
  - Feeling abnormal [None]
  - Pain [Recovered/Resolved]
  - Menstruation irregular [None]
  - Pelvic inflammatory disease [Recovered/Resolved]
  - Parametritis [Recovered/Resolved]
  - Abdominal pain lower [Recovered/Resolved]
  - Vomiting [Recovered/Resolved]
  - Colitis [Recovered/Resolved]
  - Dizziness [Recovered/Resolved]
  - Visual impairment [Recovered/Resolved]
  - Abdominal tenderness [Recovered/Resolved]
  - Cervix disorder [Recovered/Resolved]
  - Uterine tenderness [Recovered/Resolved]
  - Tubo-ovarian abscess [Recovered/Resolved]
  - Pyrexia [Recovered/Resolved]
  - Salpingo-oophoritis [Recovered/Resolved]
  - Endometritis [Recovered/Resolved]
  - Vaginal haemorrhage [None]
